FAERS Safety Report 17490985 (Version 1)
Quarter: 2020Q1

REPORT INFORMATION
  Report Type: Spontaneous
  Country: ZA (occurrence: ZA)
  Receive Date: 20200303
  Receipt Date: 20200303
  Transmission Date: 20200409
  Serious: Yes (Other)
  Sender: FDA-Public Use
  Company Number: ZA-ASTRAZENECA-2020SE29087

PATIENT
  Age: 75 Year
  Sex: Female
  Weight: 47 kg

DRUGS (6)
  1. TREPILINE [Concomitant]
     Active Substance: AMITRIPTYLINE
  2. SYMBICORD [Suspect]
     Active Substance: BUDESONIDE\FORMOTEROL
     Indication: CHRONIC OBSTRUCTIVE PULMONARY DISEASE
     Dosage: 80 UG/INHAL, UNKNOWN UNKNOWN
     Route: 055
     Dates: end: 20200221
  3. DEMETRIN [Concomitant]
     Active Substance: PRAZEPAM
  4. MYLAN ALPRAZOLAM [Concomitant]
     Active Substance: ALPRAZOLAM
  5. EUTHYROX [Concomitant]
     Active Substance: LEVOTHYROXINE SODIUM
  6. BLADDER ANTISPASMODIC [Concomitant]

REACTIONS (7)
  - Nervousness [Unknown]
  - Nausea [Recovered/Resolved]
  - Palpitations [Recovering/Resolving]
  - Dizziness [Not Recovered/Not Resolved]
  - Hypotension [Not Recovered/Not Resolved]
  - Panic attack [Recovered/Resolved]
  - Muscular weakness [Unknown]
